FAERS Safety Report 24190541 (Version 1)
Quarter: 2024Q3

REPORT INFORMATION
  Report Type: Report from Study
  Country: TH (occurrence: TH)
  Receive Date: 20240808
  Receipt Date: 20240808
  Transmission Date: 20241016
  Serious: Yes (Hospitalization)
  Sender: BAYER
  Company Number: TH-BAYER-2024A089700

PATIENT
  Age: 64 Year
  Sex: Male

DRUGS (1)
  1. STIVARGA [Suspect]
     Active Substance: REGORAFENIB MONOHYDRATE
     Indication: Colorectal cancer
     Dosage: 160 MG, QD AKE 21 DAYS REST 7 DAYS
     Dates: start: 20240212, end: 20240715

REACTIONS (3)
  - Red blood cell count decreased [Recovering/Resolving]
  - Pallor [Recovering/Resolving]
  - Off label use [None]

NARRATIVE: CASE EVENT DATE: 20240213
